FAERS Safety Report 25256360 (Version 1)
Quarter: 2025Q2

REPORT INFORMATION
  Report Type: Spontaneous
  Country: US (occurrence: US)
  Receive Date: 20250430
  Receipt Date: 20250430
  Transmission Date: 20250717
  Serious: No
  Sender: BAYER HEALTHCARE PHARMACEUTICALS INC.
  Company Number: US-BAYER-2025A055358

PATIENT
  Age: 36 Year
  Sex: Female

DRUGS (2)
  1. MIRENA [Suspect]
     Active Substance: LEVONORGESTREL
     Indication: Contraception
     Dosage: 20?G/DAY
     Route: 015
     Dates: start: 201004, end: 20250422
  2. MIRENA [Suspect]
     Active Substance: LEVONORGESTREL
     Indication: Hormone level abnormal

REACTIONS (2)
  - Amenorrhoea [Recovered/Resolved]
  - Device use issue [None]

NARRATIVE: CASE EVENT DATE: 20100901
